FAERS Safety Report 5007323-6 (Version None)
Quarter: 2006Q2

REPORT INFORMATION
  Report Type: 
  Country: None (occurrence: None)
  Receive Date: 20060517
  Receipt Date: 20060503
  Transmission Date: 20061013
  Serious: Yes (Death)
  Sender: FDA-Public Use
  Company Number: SUSI-2006-00477

PATIENT
  Age: 9 Year
  Sex: Male
  Weight: 29.9 kg

DRUGS (4)
  1. ADDERALL XR 10 [Suspect]
     Dosage: SEE IMAGE
     Dates: start: 20021201, end: 20050701
  2. ADDERALL XR 10 [Suspect]
     Dosage: SEE IMAGE
     Dates: start: 20060201, end: 20060422
  3. SEROQUEL [Concomitant]
  4. GUANFACINE HYDROCHLORIDE XR [Concomitant]

REACTIONS (4)
  - BLOOD SODIUM DECREASED [None]
  - CHEST PAIN [None]
  - CONVULSION [None]
  - DRUG ABUSER [None]
